FAERS Safety Report 10333750 (Version 2)
Quarter: 2014Q3

REPORT INFORMATION
  Report Type: Spontaneous
  Country: US (occurrence: US)
  Receive Date: 20140723
  Receipt Date: 20140723
  Transmission Date: 20150326
  Serious: No
  Sender: FDA-Public Use
  Company Number: US-UNITED THERAPEUTICS-UTC-047953

PATIENT
  Age: 79 Year
  Sex: Female
  Weight: 77.98 kg

DRUGS (2)
  1. SILDENAFIL [Concomitant]
     Active Substance: SILDENAFIL
     Indication: PRODUCT USED FOR UNKNOWN INDICATION
  2. TYVASO [Suspect]
     Active Substance: TREPROSTINIL
     Dosage: 18-54 MICROGRAMS, QID
     Dates: start: 20140418

REACTIONS (7)
  - Insomnia [Unknown]
  - Abdominal discomfort [Unknown]
  - Abdominal distension [Unknown]
  - Chest discomfort [Unknown]
  - Somnolence [Unknown]
  - Pain [Unknown]
  - Dry mouth [Unknown]

NARRATIVE: CASE EVENT DATE: 201404
